FAERS Safety Report 25363030 (Version 1)
Quarter: 2025Q2

REPORT INFORMATION
  Report Type: Spontaneous
  Country: US (occurrence: None)
  Receive Date: 20250525
  Receipt Date: 20250525
  Transmission Date: 20250717
  Serious: Yes (Hospitalization, Disabling)
  Sender: FDA-CTU
  Company Number: None

PATIENT
  Age: 78 Year
  Sex: Male
  Weight: 125.1 kg

DRUGS (11)
  1. CIPROFLOXACIN [Suspect]
     Active Substance: CIPROFLOXACIN
     Indication: Prophylaxis
     Dosage: 20 TABLET(S) TWICE A DAY ORAL ?
     Route: 048
     Dates: start: 20250518, end: 20250524
  2. CIPROFLOXACIN [Suspect]
     Active Substance: CIPROFLOXACIN
     Indication: Cystitis escherichia
  3. CIPROFLOXACIN [Suspect]
     Active Substance: CIPROFLOXACIN
  4. LISINOPRIL [Concomitant]
     Active Substance: LISINOPRIL
  5. LOVASTATIN [Concomitant]
     Active Substance: LOVASTATIN
  6. METOPROLOL [Concomitant]
     Active Substance: METOPROLOL
  7. BIAXIN [Concomitant]
     Active Substance: CLARITHROMYCIN
  8. NORCO [Concomitant]
     Active Substance: ACETAMINOPHEN\HYDROCODONE BITARTRATE
  9. HYTRIN [Concomitant]
     Active Substance: TERAZOSIN HYDROCHLORIDE
  10. CYMBALTA [Concomitant]
     Active Substance: DULOXETINE HYDROCHLORIDE
  11. GABAPENTIN [Concomitant]
     Active Substance: GABAPENTIN

REACTIONS (9)
  - Muscular weakness [None]
  - Hallucination, visual [None]
  - Hallucination, auditory [None]
  - Arthralgia [None]
  - Arthralgia [None]
  - Pain in extremity [None]
  - Unevaluable event [None]
  - Muscular weakness [None]
  - Taste disorder [None]

NARRATIVE: CASE EVENT DATE: 20250518
